FAERS Safety Report 9131870 (Version 1)
Quarter: 2013Q1

REPORT INFORMATION
  Report Type: Spontaneous
  Country: FR (occurrence: FR)
  Receive Date: 20130301
  Receipt Date: 20130301
  Transmission Date: 20140127
  Serious: Yes (Other)
  Sender: FDA-Public Use
  Company Number: FR-ELI_LILLY_AND_COMPANY-FR201302010082

PATIENT
  Age: 73 Year
  Sex: Male

DRUGS (8)
  1. BYETTA [Suspect]
     Route: 058
  2. WARFARIN [Concomitant]
  3. VALSARTAN/HYDROCHLOORTHIAZIDE [Concomitant]
  4. LERCANIDIPINE [Concomitant]
  5. RILMENIDINE [Concomitant]
  6. GLIBENCLAMIDE W/METFORMIN [Concomitant]
  7. REPAGLINIDE [Concomitant]
  8. FUROSEMIDE [Concomitant]

REACTIONS (3)
  - Melaena [Recovered/Resolved]
  - Oesophagitis [Unknown]
  - Vomiting [Unknown]
